FAERS Safety Report 12926485 (Version 1)
Quarter: 2016Q4

REPORT INFORMATION
  Report Type: Spontaneous
  Country: GB (occurrence: GB)
  Receive Date: 20161109
  Receipt Date: 20161109
  Transmission Date: 20170207
  Serious: Yes (Other)
  Sender: FDA-Public Use
  Company Number: GB-TEVA-709254ACC

PATIENT
  Age: 60 Year
  Sex: Male

DRUGS (4)
  1. MYFENAX [Suspect]
     Active Substance: MYCOPHENOLATE MOFETIL
     Route: 065
  2. PREDNISOLONE. [Suspect]
     Active Substance: PREDNISOLONE
     Route: 065
  3. TACROLIMUS - ADOPORT - SANDOZ [Suspect]
     Active Substance: TACROLIMUS
     Route: 065
  4. TACROLIMUS - ADOPORT - SANDOZ [Suspect]
     Active Substance: TACROLIMUS

REACTIONS (1)
  - Foot fracture [Unknown]

NARRATIVE: CASE EVENT DATE: 20161017
